FAERS Safety Report 23193844 (Version 1)
Quarter: 2023Q4

REPORT INFORMATION
  Report Type: Other
  Country: CA (occurrence: None)
  Receive Date: 20231116
  Receipt Date: 20231116
  Transmission Date: 20240110
  Serious: Yes (Other)
  Sender: FDA-Public Use
  Company Number: CA-Encube-000515

PATIENT
  Age: 74 Year
  Sex: Female

DRUGS (1)
  1. METRONIDAZOLE [Suspect]
     Active Substance: METRONIDAZOLE
     Indication: Colitis ulcerative

REACTIONS (15)
  - Nystagmus [Not Recovered/Not Resolved]
  - Neurotoxicity [Recovering/Resolving]
  - Nausea [Unknown]
  - Fall [Unknown]
  - Oscillopsia [Not Recovered/Not Resolved]
  - Diplopia [Unknown]
  - Ataxia [Recovered/Resolved]
  - Dysarthria [Recovered/Resolved]
  - Paraesthesia [Unknown]
  - Dysmetria [Unknown]
  - Dysdiadochokinesis [Unknown]
  - Decreased vibratory sense [Unknown]
  - Hyporeflexia [Unknown]
  - Balance disorder [Not Recovered/Not Resolved]
  - Off label use [Unknown]
